FAERS Safety Report 7700853-5 (Version None)
Quarter: 2011Q3

REPORT INFORMATION
  Report Type: 
  Country: None (occurrence: None)
  Receive Date: 20110822
  Receipt Date: 20110808
  Transmission Date: 20111222
  Serious: Yes (Other)
  Sender: FDA-Public Use
  Company Number: PHHY2011MX72174

PATIENT
  Age: 75 Year
  Sex: Female

DRUGS (4)
  1. DIOVAN [Suspect]
     Indication: HYPERTENSION
     Dosage: 80 MG, 1 TABLET PER DAY
     Dates: start: 20060801
  2. PLAVIX [Concomitant]
  3. ASPIRIN [Concomitant]
  4. ISOSORBIDE DINITRATE [Concomitant]

REACTIONS (4)
  - DIZZINESS [None]
  - SENSE OF OPPRESSION [None]
  - CHEST PAIN [None]
  - FATIGUE [None]
